FAERS Safety Report 21063339 (Version 1)
Quarter: 2022Q3

REPORT INFORMATION
  Report Type: Spontaneous
  Country: DE (occurrence: DE)
  Receive Date: 20220711
  Receipt Date: 20220711
  Transmission Date: 20221027
  Serious: Yes (Other)
  Sender: FDA-Public Use
  Company Number: DE-SUN PHARMACEUTICAL INDUSTRIES LTD-2022RR-343947

PATIENT
  Age: 55 Year
  Sex: Female

DRUGS (2)
  1. DEFERASIROX [Suspect]
     Active Substance: DEFERASIROX
     Indication: Overchelation
     Dosage: 12 MILLIGRAM/KILOGRAM, DAILY
     Route: 065
  2. DEFERASIROX [Suspect]
     Active Substance: DEFERASIROX
     Dosage: 17 MILLIGRAM/KILOGRAM, DAILY
     Route: 065

REACTIONS (4)
  - Therapeutic response unexpected [Unknown]
  - Erythropoiesis abnormal [Unknown]
  - Cholestasis [Unknown]
  - Haemolysis [Recovering/Resolving]
